FAERS Safety Report 7168165-9 (Version None)
Quarter: 2010Q4

REPORT INFORMATION
  Report Type: 
  Country: None (occurrence: None)
  Receive Date: 20101216
  Receipt Date: 20101208
  Transmission Date: 20110411
  Serious: Yes (Life-Threatening)
  Sender: FDA-Public Use
  Company Number: FR-BAXTER-2010BH029785

PATIENT
  Age: 48 Year
  Sex: Female
  Weight: 51 kg

DRUGS (6)
  1. SUPRANE [Suspect]
     Indication: ANAESTHESIA
     Route: 055
     Dates: start: 20021001, end: 20021001
  2. CEFACIDAL [Suspect]
     Indication: ANTIBIOTIC PROPHYLAXIS
     Route: 042
     Dates: start: 20021001, end: 20021001
  3. TRACRIUM [Suspect]
     Indication: ANAESTHESIA
     Route: 065
     Dates: start: 20021001, end: 20021001
  4. DIPRIVAN [Suspect]
     Indication: ANAESTHESIA
     Route: 065
     Dates: start: 20021001, end: 20021001
  5. SUFENTANIL CITRATE [Suspect]
     Indication: ANAESTHESIA
     Route: 065
     Dates: start: 20021001, end: 20021001
  6. HYPNOVEL [Suspect]
     Indication: PRODUCT USED FOR UNKNOWN INDICATION
     Route: 065
     Dates: start: 20021001, end: 20021001

REACTIONS (2)
  - ANAPHYLACTIC SHOCK [None]
  - ERYTHEMA [None]
